FAERS Safety Report 6311198-2 (Version None)
Quarter: 2009Q3

REPORT INFORMATION
  Report Type: 
  Country: None (occurrence: None)
  Receive Date: 20090817
  Receipt Date: 20090806
  Transmission Date: 20100115
  Serious: Yes (Death, Hospitalization)
  Sender: FDA-Public Use
  Company Number: GB-AMGEN-US190601

PATIENT
  Sex: Female
  Weight: 62 kg

DRUGS (3)
  1. ENBREL [Suspect]
     Indication: PSORIATIC ARTHROPATHY
     Route: 058
     Dates: start: 20030919, end: 20060310
  2. PREDNISOLONE [Suspect]
     Route: 065
     Dates: start: 20031201
  3. CORTICOSTEROID NOS [Concomitant]
     Dosage: UNKNOWN

REACTIONS (2)
  - FALL [None]
  - SUBARACHNOID HAEMORRHAGE [None]
